FAERS Safety Report 9922104 (Version 1)
Quarter: 2014Q1

REPORT INFORMATION
  Report Type: Spontaneous
  Country: US (occurrence: None)
  Receive Date: 20140224
  Receipt Date: 20140224
  Transmission Date: 20141002
  Serious: Yes (Death)
  Sender: FDA-Public Use
  Company Number: None

PATIENT
  Sex: Female

DRUGS (1)
  1. XELODA 500MG ROCHE PHARAMCEUTICALS [Suspect]
     Indication: COLON CANCER
     Dosage: 4 TABS  14 DAYS OF 7 DAYS OFF BID PO
     Route: 048
     Dates: start: 20130715

REACTIONS (1)
  - Death [None]
